FAERS Safety Report 8220408-6 (Version None)
Quarter: 2012Q1

REPORT INFORMATION
  Report Type: 
  Country: None (occurrence: None)
  Receive Date: 20120316
  Receipt Date: 20120307
  Transmission Date: 20120608
  Serious: Yes (Other)
  Sender: FDA-Public Use
  Company Number: ACO_29639_2012

PATIENT
  Age: 55 Year
  Sex: Female
  Weight: 104.3 kg

DRUGS (6)
  1. OXYBUTYNIN [Concomitant]
  2. LORAZEPAM [Concomitant]
  3. WELLBUTRIN [Concomitant]
  4. LETROZOLE [Concomitant]
  5. COPAXONE [Concomitant]
  6. AMPYRA [Suspect]
     Indication: MULTIPLE SCLEROSIS
     Dosage: 10 MG, BID, ORAL
     Route: 048
     Dates: start: 20110101, end: 20110101

REACTIONS (3)
  - DIZZINESS [None]
  - FATIGUE [None]
  - NEPHROLITHIASIS [None]
